FAERS Safety Report 8365934 (Version 2)
Quarter: 2013Q1

REPORT INFORMATION
  Report Type: Report from Study
  Country: US (occurrence: US)
  Receive Date: 20120128
  Receipt Date: 20130130
  Transmission Date: 20140127
  Serious: No
  Sender: FDA-Public Use
  Company Number: US-ABBOTT-11P-163-0711472-00

PATIENT
  Age: 36 Year
  Sex: Male

DRUGS (5)
  1. HUMIRA [Suspect]
     Indication: RHEUMATOID ARTHRITIS
     Dosage: 40 MG EVERY 2 OR 3 WEEKS
     Dates: start: 201011, end: 201106
  2. HUMIRA [Suspect]
     Dosage: 40 MG EVERY 2 OR 3 WEEKS
  3. METHOTREXATE [Concomitant]
     Indication: PRODUCT USED FOR UNKNOWN INDICATION
     Route: 048
     Dates: end: 201105
  4. FOLIC ACID [Concomitant]
     Indication: PRODUCT USED FOR UNKNOWN INDICATION
     Route: 048
     Dates: end: 201105
  5. HYDROCHLORINE [Concomitant]
     Indication: PRODUCT USED FOR UNKNOWN INDICATION
     Route: 048

REACTIONS (10)
  - Device malfunction [Unknown]
  - Incorrect dose administered [Unknown]
  - Injection site vesicles [Recovering/Resolving]
  - Injection site haemorrhage [Recovering/Resolving]
  - Injection site reaction [Not Recovered/Not Resolved]
  - Rheumatoid arthritis [Recovering/Resolving]
  - Joint swelling [Recovering/Resolving]
  - Joint stiffness [Recovering/Resolving]
  - Joint effusion [Unknown]
  - Injection site reaction [Unknown]
